FAERS Safety Report 6883087-6 (Version None)
Quarter: 2010Q3

REPORT INFORMATION
  Report Type: 
  Country: None (occurrence: None)
  Receive Date: 20100708
  Receipt Date: 20100112
  Transmission Date: 20110219
  Serious: Yes (Other)
  Sender: FDA-Public Use
  Company Number: 2010004770

PATIENT
  Sex: Male

DRUGS (2)
  1. CHANTIX [Suspect]
     Dosage: 1 MG, 3X/DAY, ORAL : 0.5 MG
     Route: 048
     Dates: start: 20100101
  2. CHANTIX [Suspect]
     Dosage: 1 MG, 3X/DAY, ORAL : 0.5 MG
     Route: 048
     Dates: start: 20100101

REACTIONS (3)
  - PARANOIA [None]
  - SEXUALLY ACTIVE [None]
  - TREMOR [None]
